FAERS Safety Report 16161648 (Version 1)
Quarter: 2019Q2

REPORT INFORMATION
  Report Type: Spontaneous
  Country: IT (occurrence: IT)
  Receive Date: 20190405
  Receipt Date: 20190405
  Transmission Date: 20190711
  Serious: Yes (Hospitalization)
  Sender: FDA-Public Use
  Company Number: IT-ACCORD-118175

PATIENT
  Age: 70 Year
  Sex: Male

DRUGS (7)
  1. CLOPIDOGREL [Suspect]
     Active Substance: CLOPIDOGREL BISULFATE
     Indication: ISCHAEMIC HEART DISEASE PROPHYLAXIS
     Route: 048
     Dates: start: 20180101, end: 20190123
  2. CARDIOASPIRIN [Interacting]
     Active Substance: ASPIRIN
     Indication: THROMBOSIS PROPHYLAXIS
     Dosage: STRENGTH 100 MG
     Route: 048
     Dates: start: 20180101, end: 20190123
  3. LASIX [Concomitant]
     Active Substance: FUROSEMIDE
     Dosage: STRENGTH 25 MG
  4. METFORMIN [Concomitant]
     Active Substance: METFORMIN HYDROCHLORIDE
  5. XARELTO [Interacting]
     Active Substance: RIVAROXABAN
     Indication: ATRIAL FIBRILLATION
     Dosage: STRENGTH 15 MG
     Route: 048
     Dates: start: 20181031, end: 20190123
  6. ATORVASTATIN [Concomitant]
     Active Substance: ATORVASTATIN
  7. TAREG [Concomitant]
     Active Substance: VALSARTAN
     Dosage: STRENGTH 160 MG

REACTIONS (2)
  - Drug interaction [Unknown]
  - Anaemia [Unknown]

NARRATIVE: CASE EVENT DATE: 20190123
